FAERS Safety Report 5155551-1 (Version None)
Quarter: 2006Q4

REPORT INFORMATION
  Report Type: 
  Country: None (occurrence: None)
  Receive Date: 20061114
  Receipt Date: 20061101
  Transmission Date: 20070319
  Serious: Yes (Other)
  Sender: FDA-Public Use
  Company Number: US-2006-014271

PATIENT
  Age: 28 Year
  Sex: Female
  Weight: 90 kg

DRUGS (2)
  1. YASMIN [Suspect]
     Indication: ORAL CONTRACEPTION
     Dosage: 1 TAB (S), 1X/DAY, ORAL
     Route: 048
     Dates: start: 20060510, end: 20060519
  2. LEVOTHYROXINE SODIUM [Concomitant]

REACTIONS (9)
  - ABDOMINAL PAIN [None]
  - CRYING [None]
  - DEPRESSION [None]
  - HEADACHE [None]
  - IRRITABILITY [None]
  - NAUSEA [None]
  - SCREAMING [None]
  - SUICIDAL IDEATION [None]
  - VOMITING [None]
